FAERS Safety Report 22143442 (Version 1)
Quarter: 2023Q1

REPORT INFORMATION
  Report Type: Spontaneous
  Country: ES (occurrence: ES)
  Receive Date: 20230327
  Receipt Date: 20230327
  Transmission Date: 20230417
  Serious: Yes (Other)
  Sender: FDA-Public Use
  Company Number: None

PATIENT
  Age: 64 Year
  Sex: Female

DRUGS (7)
  1. MINOXIDIL [Suspect]
     Active Substance: MINOXIDIL
     Indication: Alopecia
     Dosage: 1 MG, 1X/DAY (AT NIGHT)
     Dates: start: 20230126
  2. LORATADINA NORMON [Concomitant]
     Indication: Hypersensitivity
     Dosage: 10 MG, 1X/DAY (BREAKFAST)
     Route: 048
     Dates: start: 20220820
  3. FLUTICASONE FUROATE [Concomitant]
     Active Substance: FLUTICASONE FUROATE
     Indication: Arthralgia
     Dosage: 55 UG, DAILY
     Route: 045
     Dates: start: 20220803
  4. ONYTEC [Concomitant]
     Indication: Dermatophytosis of nail
     Dosage: 80 MG/G, 1X/DAY
     Route: 061
     Dates: start: 20230126
  5. VENTOLIN [Concomitant]
     Active Substance: ALBUTEROL SULFATE
     Indication: Bronchitis
     Dosage: 100 UG, 3X/DAY (EACH 8H)
     Dates: start: 20230113
  6. ACETAMINOPHEN [Concomitant]
     Active Substance: ACETAMINOPHEN
     Indication: Myalgia
     Dosage: 1 G, 3X/DAY (BREAKFAST, LUNCH, DINNER)
     Route: 048
     Dates: start: 20210210
  7. CHOLECALCIFEROL [Concomitant]
     Active Substance: CHOLECALCIFEROL
     Indication: Visual impairment
     Dosage: 1 DF, MONTHLY (EACH 30 DAYS)
     Route: 048
     Dates: start: 20220803

REACTIONS (2)
  - Chest pain [Recovered/Resolved]
  - Off label use [Unknown]

NARRATIVE: CASE EVENT DATE: 20230126
